FAERS Safety Report 7068351-2 (Version None)
Quarter: 2010Q4

REPORT INFORMATION
  Report Type: 
  Country: None (occurrence: None)
  Receive Date: 20101028
  Receipt Date: 20101021
  Transmission Date: 20110411
  Serious: Yes (Death, Hospitalization)
  Sender: FDA-Public Use
  Company Number: A0888768A

PATIENT
  Age: 65 Year
  Sex: Male

DRUGS (1)
  1. AVANDARYL [Suspect]
     Dosage: 1TAB TWICE PER DAY
     Dates: end: 20071210

REACTIONS (1)
  - SUDDEN DEATH [None]
